FAERS Safety Report 8613469-3 (Version None)
Quarter: 2012Q3

REPORT INFORMATION
  Report Type: 
  Country: None (occurrence: None)
  Receive Date: 20120823
  Receipt Date: 20120724
  Transmission Date: 20120928
  Serious: Yes (Hospitalization)
  Sender: FDA-Public Use
  Company Number: JP-009507513-1208JPN006742

PATIENT

DRUGS (21)
  1. ASENAPINE MALEATE-SCHIZOPHRENIA [Suspect]
     Dosage: 10 MG, BID
     Route: 060
     Dates: start: 20120627, end: 20120704
  2. LORAZEPAM [Suspect]
     Dosage: AS NEEDED
     Route: 048
     Dates: start: 20120410
  3. ATARAX [Suspect]
     Indication: INSOMNIA
     Dosage: 50 MG, BID
     Route: 048
     Dates: start: 20120506
  4. AKINETON TABLETS [Concomitant]
     Indication: EXTRAPYRAMIDAL DISORDER
     Dosage: 1 MG, BID
     Route: 048
     Dates: start: 20120417
  5. GASMOTIN [Concomitant]
     Indication: GASTROINTESTINAL MUCOSAL DISORDER
     Dosage: 5 MG, TID
     Route: 048
     Dates: start: 20120330
  6. PANTOSIN [Concomitant]
     Indication: CONSTIPATION
     Dosage: 3 (DOSAGE FORM)
     Route: 048
     Dates: start: 20120330
  7. ASENAPINE MALEATE-SCHIZOPHRENIA [Suspect]
     Indication: SCHIZOPHRENIA
     Dosage: ASENAPINE 5MG AND 10MG OR PLACEBO
     Route: 060
     Dates: start: 20120518, end: 20120609
  8. ASENAPINE MALEATE-SCHIZOPHRENIA [Suspect]
     Dosage: ASENAPINE 5MG OR 10MG
     Route: 060
     Dates: start: 20120609, end: 20120627
  9. AKINETON TABLETS [Concomitant]
     Route: 048
     Dates: start: 20120417
  10. LORAZEPAM [Suspect]
     Indication: INSOMNIA
     Dosage: 0.5 MG, QD
     Route: 048
     Dates: start: 20120404
  11. MAGMITT [Concomitant]
     Indication: CONSTIPATION
     Dosage: 500 MG, TID
     Route: 048
     Dates: start: 20120330
  12. VENA [Suspect]
     Indication: INSOMNIA
     Dosage: 25 MG, BID
     Route: 048
     Dates: start: 20120330
  13. EFFORTIL [Concomitant]
     Indication: HYPOTENSION
     Dosage: 5 MG, TID
     Route: 048
     Dates: start: 20120330
  14. MUCOSTA [Concomitant]
     Indication: GASTROINTESTINAL MUCOSAL DISORDER
     Dosage: 100 MG, TID
     Route: 048
     Dates: start: 20120429
  15. ASENAPINE MALEATE-SCHIZOPHRENIA [Suspect]
     Dosage: 5 MG, BID
     Route: 060
     Dates: start: 20120704
  16. PURSENNID (SENNOSIDES) [Concomitant]
     Indication: CONSTIPATION
     Dosage: 48 MG, QD
     Route: 048
     Dates: start: 20120330
  17. PURSENNID (SENNA) [Concomitant]
     Indication: CONSTIPATION
     Route: 048
     Dates: start: 20120330
  18. LENDORMIN [Suspect]
     Indication: INSOMNIA
     Dosage: 0.25 MG, QD
     Route: 048
     Dates: start: 20120404
  19. VENA [Suspect]
     Dosage: AS NEEDED
     Route: 048
     Dates: start: 20120410
  20. RABEPRAZOLE SODIUM [Concomitant]
     Indication: GASTROINTESTINAL MUCOSAL DISORDER
     Dosage: 10 MG, QD
     Route: 048
     Dates: start: 20120330
  21. RISUMIC [Concomitant]
     Indication: HYPOTENSION
     Dosage: 10 MG, BID
     Route: 048
     Dates: start: 20120330

REACTIONS (1)
  - HYPOTENSION [None]
